FAERS Safety Report 13445549 (Version 1)
Quarter: 2017Q2

REPORT INFORMATION
  Report Type: Spontaneous
  Country: FR (occurrence: FR)
  Receive Date: 20170415
  Receipt Date: 20170415
  Transmission Date: 20170830
  Serious: Yes (Life-Threatening, Hospitalization, Disabling, Other)
  Sender: FDA-Public Use
  Company Number: FR-ABBVIE-17K-056-1944893-00

PATIENT
  Sex: Female

DRUGS (5)
  1. IMETH [Suspect]
     Active Substance: METHOTREXATE SODIUM
     Dosage: DOSE DECREASED
     Route: 058
  2. CORTANCYL [Suspect]
     Active Substance: PREDNISONE
     Dosage: DOSE INCREASED
     Route: 065
  3. CORTANCYL [Suspect]
     Active Substance: PREDNISONE
     Indication: RHEUMATOID ARTHRITIS
     Route: 065
     Dates: start: 2015
  4. HUMIRA [Suspect]
     Active Substance: ADALIMUMAB
     Indication: RHEUMATOID ARTHRITIS
     Route: 058
     Dates: start: 201204, end: 201510
  5. IMETH [Suspect]
     Active Substance: METHOTREXATE SODIUM
     Indication: RHEUMATOID ARTHRITIS
     Route: 058

REACTIONS (6)
  - Skin necrosis [Recovered/Resolved with Sequelae]
  - Systemic lupus erythematosus [Not Recovered/Not Resolved]
  - Pneumococcal sepsis [Unknown]
  - Respiratory distress [Unknown]
  - Meningitis pneumococcal [Recovered/Resolved with Sequelae]
  - Dermo-hypodermitis [Recovered/Resolved with Sequelae]

NARRATIVE: CASE EVENT DATE: 2015
